FAERS Safety Report 5530397-0 (Version None)
Quarter: 2007Q4

REPORT INFORMATION
  Report Type: 
  Country: None (occurrence: None)
  Receive Date: 20071127
  Receipt Date: 20071112
  Transmission Date: 20080405
  Serious: Yes (Life-Threatening)
  Sender: FDA-Public Use
  Company Number: 2007S1011783

PATIENT
  Age: 44 Year
  Sex: Female
  Weight: 69 kg

DRUGS (2)
  1. WARFARIN SODIUM [Suspect]
     Indication: PULMONARY EMBOLISM
     Dosage: ;ORAL
     Route: 048
     Dates: start: 19900101
  2. METHOTREXATE [Suspect]
     Dosage: 7.5 MG;WEEKLY;ORAL
     Route: 048
     Dates: start: 20070902

REACTIONS (1)
  - INTERNATIONAL NORMALISED RATIO DECREASED [None]
